FAERS Safety Report 11833184 (Version 3)
Quarter: 2016Q1

REPORT INFORMATION
  Report Type: Report from Study
  Country: US (occurrence: US)
  Receive Date: 20151214
  Receipt Date: 20160122
  Transmission Date: 20160525
  Serious: Yes (Other)
  Sender: FDA-Public Use
  Company Number: US-TAKEDA-2015TUS017596

PATIENT
  Age: 57 Year
  Sex: Female
  Weight: 104.31 kg

DRUGS (5)
  1. NALTREXONE, BUPROPION [Suspect]
     Active Substance: BUPROPION HYDROCHLORIDE\NALTREXONE HYDROCHLORIDE
     Dosage: 8MG/90MG, QID
     Route: 048
     Dates: start: 20151117, end: 20151120
  2. NALTREXONE, BUPROPION [Suspect]
     Active Substance: BUPROPION HYDROCHLORIDE\NALTREXONE HYDROCHLORIDE
     Indication: WEIGHT CONTROL
     Dosage: 8MG/90MG, QD
     Route: 048
     Dates: start: 20151027, end: 20151103
  3. NALTREXONE, BUPROPION [Suspect]
     Active Substance: BUPROPION HYDROCHLORIDE\NALTREXONE HYDROCHLORIDE
     Indication: OBESITY
     Dosage: 8MG/90MG, BID
     Route: 048
     Dates: start: 20151103, end: 20151110
  4. NALTREXONE, BUPROPION [Suspect]
     Active Substance: BUPROPION HYDROCHLORIDE\NALTREXONE HYDROCHLORIDE
     Dosage: 8MG/90MG, TID
     Route: 048
     Dates: start: 20151110, end: 20151117
  5. DIOVAN HCT [Concomitant]
     Active Substance: HYDROCHLOROTHIAZIDE\VALSARTAN
     Indication: HYPERTENSION
     Dosage: UNK, QD
     Route: 048
     Dates: start: 20100531

REACTIONS (4)
  - Cardiac flutter [Recovered/Resolved]
  - Palpitations [Recovered/Resolved]
  - Chest pain [Recovered/Resolved]
  - Blood pressure increased [Recovered/Resolved]

NARRATIVE: CASE EVENT DATE: 20151118
